FAERS Safety Report 19705948 (Version 2)
Quarter: 2021Q3

REPORT INFORMATION
  Report Type: Report from Study
  Country: None (occurrence: US)
  Receive Date: 20210817
  Receipt Date: 20210819
  Transmission Date: 20211014
  Serious: Yes (Other)
  Sender: FDA-Public Use
  Company Number: US-ABBVIE-21K-163-4035823-00

PATIENT
  Age: 65 Year
  Sex: Female

DRUGS (5)
  1. SKYRIZI [Suspect]
     Active Substance: RISANKIZUMAB-RZAA
     Indication: PSORIASIS
     Route: 058
     Dates: start: 202007
  2. PFIZER?BIONTECH COVID?19 VACCINE [Suspect]
     Active Substance: TOZINAMERAN
     Indication: COVID-19 IMMUNISATION
     Dosage: 1ST DOSE
     Route: 030
     Dates: start: 20210625, end: 20210625
  3. PFIZER?BIONTECH COVID?19 VACCINE [Suspect]
     Active Substance: TOZINAMERAN
     Dosage: 2ND DOSE
     Route: 030
     Dates: start: 20210725, end: 20210725
  4. ESTRADIOL. [Concomitant]
     Active Substance: ESTRADIOL
     Indication: HORMONE LEVEL ABNORMAL
  5. PANTOPRAZOLE [Concomitant]
     Active Substance: PANTOPRAZOLE
     Indication: GASTROOESOPHAGEAL REFLUX DISEASE

REACTIONS (3)
  - Cataract [Not Recovered/Not Resolved]
  - Hypoaesthesia [Not Recovered/Not Resolved]
  - Paraesthesia oral [Not Recovered/Not Resolved]

NARRATIVE: CASE EVENT DATE: 202106
